FAERS Safety Report 5371279-7 (Version None)
Quarter: 2007Q2

REPORT INFORMATION
  Report Type: 
  Country: None (occurrence: None)
  Receive Date: 20070615
  Receipt Date: 20061020
  Transmission Date: 20071010
  Serious: Yes (Other)
  Sender: FDA-Public Use
  Company Number: 200618729US

PATIENT
  Age: 53 Year
  Sex: Male

DRUGS (10)
  1. LANTUS [Suspect]
     Indication: DIABETES MELLITUS INSULIN-DEPENDENT
     Dosage: 27 U QD SC
     Route: 058
     Dates: start: 20061011, end: 20061019
  2. LANTUS [Suspect]
     Indication: DIABETES MELLITUS INSULIN-DEPENDENT
     Dosage: 12 U QD SC
     Route: 058
     Dates: start: 20061020, end: 20061020
  3. OPTICLIK [Suspect]
     Indication: DIABETES MELLITUS INSULIN-DEPENDENT
     Dates: start: 20061011, end: 20061020
  4. NOVOLOG [Concomitant]
  5. ZOCOR [Concomitant]
  6. ENALAPRILAT (VASOTEC) [Concomitant]
  7. PLAVIX [Concomitant]
  8. LASIX [Concomitant]
  9. OTASSIUM [Concomitant]
  10. CETYLSALICYLIC ACID (ASPIRIN) [Concomitant]

REACTIONS (4)
  - BLOOD GLUCOSE INCREASED [None]
  - HEART RATE INCREASED [None]
  - HYPERHIDROSIS [None]
  - HYPOGLYCAEMIA [None]
